FAERS Safety Report 9238632 (Version 1)
Quarter: 2013Q2

REPORT INFORMATION
  Report Type: Spontaneous
  Country: US (occurrence: US)
  Receive Date: 20130418
  Receipt Date: 20130418
  Transmission Date: 20140414
  Serious: Yes (Other)
  Sender: FDA-Public Use
  Company Number: PHEH2013US006794

PATIENT
  Sex: Female

DRUGS (2)
  1. EXELON PATCH [Suspect]
     Dosage: UNK UKN, UNK
     Route: 062
     Dates: start: 2010, end: 201202
  2. ARICEPT [Concomitant]
     Dosage: UNK UKN, UNK

REACTIONS (3)
  - Dementia Alzheimer^s type [Unknown]
  - Condition aggravated [Unknown]
  - General physical health deterioration [Unknown]
